FAERS Safety Report 8814604 (Version 2)
Quarter: 2013Q1

REPORT INFORMATION
  Report Type: Spontaneous
  Country: US (occurrence: None)
  Receive Date: 20120926
  Receipt Date: 20130222
  Transmission Date: 20140127
  Serious: Yes (Congenital Anomaly)
  Sender: FDA-Public Use
  Company Number: ADR-UNK-084

PATIENT
  Age: 245 Day
  Sex: Female
  Weight: 2.5 kg

DRUGS (3)
  1. ZIDOVUDINE [Suspect]
     Indication: ACQUIRED IMMUNODEFICIENCY SYNDROME
     Dosage: 300 MG OD + ORAL
     Route: 048
     Dates: start: 20101120
  2. DARUNAVIR [Concomitant]
  3. RITONAVIR [Concomitant]

REACTIONS (4)
  - Maternal drugs affecting foetus [None]
  - Premature baby [None]
  - Foetal disorder [None]
  - Neonatal hypoxia [None]
